FAERS Safety Report 21985648 (Version 1)
Quarter: 2023Q1

REPORT INFORMATION
  Report Type: Spontaneous
  Country: CN (occurrence: CN)
  Receive Date: 20230213
  Receipt Date: 20230213
  Transmission Date: 20230417
  Serious: Yes (Other)
  Sender: FDA-Public Use
  Company Number: CN-009507513-2302CHN002338

PATIENT
  Age: 84 Year
  Sex: Female

DRUGS (3)
  1. CILASTATIN SODIUM\IMIPENEM [Suspect]
     Active Substance: CILASTATIN SODIUM\IMIPENEM
     Indication: Pneumonia
     Dosage: 1G Q8H
     Route: 041
     Dates: start: 20230111, end: 20230117
  2. VORICONAZOLE [Suspect]
     Active Substance: VORICONAZOLE
     Indication: Pneumonia
     Dosage: 200MG Q12H
     Route: 048
     Dates: start: 20230114, end: 20230120
  3. VORICONAZOLE [Suspect]
     Active Substance: VORICONAZOLE
     Dosage: 150MG, Q12H
     Route: 048
     Dates: start: 20230120

REACTIONS (3)
  - Hallucination [Recovering/Resolving]
  - Loss of consciousness [Recovering/Resolving]
  - Mental disorder [Recovering/Resolving]

NARRATIVE: CASE EVENT DATE: 20230117
